FAERS Safety Report 7973946-5 (Version None)
Quarter: 2011Q4

REPORT INFORMATION
  Report Type: 
  Country: None (occurrence: None)
  Receive Date: 20111213
  Receipt Date: 20111128
  Transmission Date: 20120403
  Serious: Yes (Hospitalization)
  Sender: FDA-Public Use
  Company Number: JP-ROCHE-1018815

PATIENT
  Age: 33 Year
  Sex: Male

DRUGS (21)
  1. AZITHROMYCIN [Suspect]
     Indication: OPPORTUNISTIC INFECTION PROPHYLAXIS
     Dosage: 1200 MG/WEEK
     Route: 048
     Dates: start: 20090910, end: 20100722
  2. SULFAMETHOXAZOLE AND TRIMETHOPRIM [Concomitant]
     Route: 048
     Dates: start: 20090908, end: 20100408
  3. ITRACONAZOLE [Concomitant]
     Route: 048
     Dates: start: 20100610, end: 20100722
  4. VALCYTE [Suspect]
     Route: 048
     Dates: start: 20100408, end: 20100414
  5. VALCYTE [Suspect]
     Route: 048
     Dates: start: 20100515, end: 20101208
  6. ISENTRESS [Concomitant]
     Route: 048
     Dates: start: 20091008, end: 20100217
  7. ITRACONAZOLE [Concomitant]
     Dates: start: 20100401, end: 20100408
  8. EPZICOM [Concomitant]
     Dosage: 1 TABLET
     Route: 048
     Dates: start: 20101207, end: 20110331
  9. VALCYTE [Suspect]
     Indication: CYTOMEGALOVIRUS CHORIORETINITIS
     Route: 048
     Dates: start: 20090903, end: 20100226
  10. EMTRICITABINE [Suspect]
     Indication: HIV INFECTION
     Dosage: 1 TABLET
     Dates: start: 20100218, end: 20101206
  11. PREDNISOLONE [Concomitant]
     Dates: end: 20100218
  12. FOSAMPRENAVIR CALCIUM [Suspect]
     Indication: HIV INFECTION
     Dates: start: 20091113, end: 20100217
  13. ISENTRESS [Concomitant]
     Route: 048
     Dates: start: 20101207, end: 20110331
  14. VALCYTE [Suspect]
     Route: 048
     Dates: start: 20100415, end: 20100423
  15. LOPINAVIR AND RITONAVIR [Suspect]
     Indication: HIV INFECTION
     Dosage: 4 TABLETS
     Route: 048
     Dates: start: 20090909, end: 20091006
  16. EFAVIRENZ [Suspect]
     Indication: HIV INFECTION
     Route: 048
     Dates: start: 20090928, end: 20100217
  17. RITONAVIR [Suspect]
     Indication: HIV INFECTION
     Route: 048
     Dates: start: 20100219
  18. DARUNAVIR [Suspect]
     Indication: HIV INFECTION
     Route: 048
     Dates: start: 20100218
  19. PENTAMIDINE ISETHIONATE [Concomitant]
     Route: 055
     Dates: start: 20100409, end: 20110106
  20. VALCYTE [Suspect]
     Route: 048
     Dates: start: 20100227, end: 20100313
  21. ZIAGEN [Concomitant]
     Route: 048
     Dates: start: 20090909, end: 20100217

REACTIONS (6)
  - PLATELET COUNT DECREASED [None]
  - LYMPHOMA [None]
  - BLOOD ALKALINE PHOSPHATASE INCREASED [None]
  - BRONCHOPULMONARY ASPERGILLOSIS [None]
  - GAMMA-GLUTAMYLTRANSFERASE INCREASED [None]
  - CYTOMEGALOVIRUS CHORIORETINITIS [None]
